FAERS Safety Report 7482121-2 (Version None)
Quarter: 2011Q2

REPORT INFORMATION
  Report Type: 
  Country: None (occurrence: None)
  Receive Date: 20110516
  Receipt Date: 20110506
  Transmission Date: 20111010
  Serious: No
  Sender: FDA-Public Use
  Company Number: US-PFIZER INC-2011080475

PATIENT
  Sex: Female
  Weight: 50 kg

DRUGS (2)
  1. DEPAKOTE [Concomitant]
     Indication: CONVULSION
     Dosage: 250 MG, 3X/DAY
     Route: 048
  2. ZOLOFT [Suspect]
     Indication: DEPRESSION
     Dosage: 100 MG, 2X/DAY
     Route: 048

REACTIONS (1)
  - DRUG SCREEN POSITIVE [None]
